FAERS Safety Report 23059729 (Version 2)
Quarter: 2023Q4

REPORT INFORMATION
  Report Type: Report from Study
  Country: US (occurrence: US)
  Receive Date: 20231012
  Receipt Date: 20231020
  Transmission Date: 20240110
  Serious: Yes (Hospitalization, Other)
  Sender: FDA-Public Use
  Company Number: US-GILEAD-2023-0643650

PATIENT
  Age: 38 Year
  Sex: Female

DRUGS (5)
  1. AMBRISENTAN [Suspect]
     Active Substance: AMBRISENTAN
     Indication: Pulmonary arterial hypertension
     Dosage: 5 MG, QD
     Route: 065
     Dates: start: 20230907
  2. AMBRISENTAN [Suspect]
     Active Substance: AMBRISENTAN
     Dosage: 10 MG, QD
     Route: 065
     Dates: start: 20230907
  3. ADEMPAS [Concomitant]
     Active Substance: RIOCIGUAT
  4. REMODULIN [Concomitant]
     Active Substance: TREPROSTINIL
  5. ELIQUIS [Concomitant]
     Active Substance: APIXABAN

REACTIONS (4)
  - Pyrexia [Unknown]
  - Kidney infection [Unknown]
  - Syncope [Recovered/Resolved]
  - Nausea [Unknown]

NARRATIVE: CASE EVENT DATE: 20230901
